FAERS Safety Report 7807937-1 (Version None)
Quarter: 2011Q4

REPORT INFORMATION
  Report Type: 
  Country: None (occurrence: None)
  Receive Date: 20111011
  Receipt Date: 20111011
  Transmission Date: 20120403
  Serious: Yes (Life-Threatening, Hospitalization)
  Sender: FDA-Public Use
  Company Number: None

PATIENT
  Sex: Female
  Weight: 68.946 kg

DRUGS (2)
  1. PEGASYS [Suspect]
     Indication: HEPATITIS C
     Dosage: 180 MCG/0.5ML
     Route: 058
     Dates: start: 20110701, end: 20110920
  2. RIBASPHERE [Concomitant]
     Dosage: 1000MG -600MG AM, 400MG PM-
     Route: 048
     Dates: start: 20110701, end: 20110920

REACTIONS (4)
  - SUICIDE ATTEMPT [None]
  - INTENTIONAL SELF-INJURY [None]
  - MENTAL DISORDER [None]
  - EXCORIATION [None]
